FAERS Safety Report 14530912 (Version 1)
Quarter: 2018Q1

REPORT INFORMATION
  Report Type: Spontaneous
  Country: DK (occurrence: DK)
  Receive Date: 20180214
  Receipt Date: 20180214
  Transmission Date: 20180509
  Serious: Yes (Other)
  Sender: FDA-Public Use
  Company Number: DK-ALLERGAN-1806944US

PATIENT
  Age: 45 Year
  Sex: Female
  Weight: 65 kg

DRUGS (1)
  1. ESCITALOPRAM OXALATE - BP [Suspect]
     Active Substance: ESCITALOPRAM OXALATE
     Indication: DEPRESSION
     Dosage: 10 MG, QD
     Route: 048
     Dates: start: 2005

REACTIONS (5)
  - Withdrawal syndrome [Unknown]
  - Serotonin syndrome [Unknown]
  - Restlessness [Unknown]
  - Musculoskeletal discomfort [Unknown]
  - Paraesthesia [Unknown]

NARRATIVE: CASE EVENT DATE: 2015
